FAERS Safety Report 12700032 (Version 1)
Quarter: 2016Q3

REPORT INFORMATION
  Report Type: Spontaneous
  Country: US (occurrence: US)
  Receive Date: 20160830
  Receipt Date: 20160830
  Transmission Date: 20161109
  Serious: No
  Sender: FDA-Public Use
  Company Number: US-BAYER-2016-166269

PATIENT
  Sex: Male
  Weight: 76.19 kg

DRUGS (1)
  1. MIRALAX [Suspect]
     Active Substance: POLYETHYLENE GLYCOL 3350
     Dosage: UNK
     Route: 048
     Dates: start: 201608, end: 201608

REACTIONS (2)
  - Defaecation urgency [Recovered/Resolved]
  - Product use issue [None]

NARRATIVE: CASE EVENT DATE: 201608
